FAERS Safety Report 8872081 (Version 1)
Quarter: 2012Q4

REPORT INFORMATION
  Report Type: 
  Country: US (occurrence: US)
  Receive Date: 20121023
  Receipt Date: 20121023
  Transmission Date: 20130627
  Serious: Yes (Other)
  Sender: FDA-Public Use
  Company Number: US-ASTELLAS-2012US005429

PATIENT
  Sex: Female

DRUGS (3)
  1. PROGRAF [Suspect]
     Indication: LIVER TRANSPLANT
     Dosage: Five tablets daily
     Route: 048
  2. CELLCEPT                           /01275102/ [Suspect]
     Indication: LIVER TRANSPLANT
     Dosage: 500 mg, bid
     Route: 048
     Dates: start: 200906
  3. CELLCEPT                           /01275102/ [Suspect]
     Indication: RENAL TRANSPLANT

REACTIONS (2)
  - Renal failure chronic [Unknown]
  - Toxicity to various agents [Unknown]
